FAERS Safety Report 6258567-7 (Version None)
Quarter: 2009Q3

REPORT INFORMATION
  Report Type: 
  Country: None (occurrence: None)
  Receive Date: 20090707
  Receipt Date: 20090629
  Transmission Date: 20100115
  Serious: Yes (Death, Hospitalization, Other)
  Sender: FDA-Public Use
  Company Number: TW-ROCHE-637673

PATIENT
  Age: 48 Year
  Sex: Female

DRUGS (5)
  1. MYCOPHENOLATE MOFETIL [Suspect]
     Indication: APLASIA PURE RED CELL
     Route: 065
     Dates: start: 20060301
  2. MYCOPHENOLATE MOFETIL [Suspect]
     Route: 065
  3. RECORMON [Suspect]
     Dosage: SUBCUTANEOUS ROUTE
     Route: 050
     Dates: start: 19990401, end: 20020801
  4. RECORMON [Suspect]
     Dosage: INTRAVENOUS ROUTE
     Route: 050
     Dates: start: 20030101, end: 20050701
  5. STEROID NOS [Suspect]
     Indication: APLASIA PURE RED CELL
     Route: 065

REACTIONS (6)
  - AEROMONA INFECTION [None]
  - APLASIA PURE RED CELL [None]
  - DIABETES MELLITUS INADEQUATE CONTROL [None]
  - GASTROINTESTINAL HAEMORRHAGE [None]
  - HEPATIC FAILURE [None]
  - SEPTIC SHOCK [None]
